FAERS Safety Report 8370059-8 (Version None)
Quarter: 2012Q1

REPORT INFORMATION
  Report Type: 
  Country: None (occurrence: None)
  Receive Date: 20120323
  Receipt Date: 20110922
  Transmission Date: 20120608
  Serious: Yes (Hospitalization, Other)
  Sender: FDA-Public Use
  Company Number: 163-21880-11062659

PATIENT
  Age: 57 Year
  Sex: Female
  Weight: 77.1115 kg

DRUGS (28)
  1. ACYCLOVIR [Concomitant]
  2. AMATIDINE (ALL OTHER THERAPEUTIC PRODUCTS) [Concomitant]
  3. CIPROFLOXACIN [Concomitant]
  4. KLONOPIN [Concomitant]
  5. PRILOSEC [Concomitant]
  6. COUMADIN [Concomitant]
  7. SINEMET [Concomitant]
  8. VITAMIN B12 [Concomitant]
  9. PERCOCET [Concomitant]
  10. REVLIMID [Suspect]
     Indication: MULTIPLE MYELOMA
     Dosage: 25;15 MG, DAILY X 21 DAYS/OFF 7 DAYS, PO
     Route: 048
     Dates: start: 20110314
  11. REVLIMID [Suspect]
     Indication: MULTIPLE MYELOMA
     Dosage: 25;15 MG, DAILY X 21 DAYS/OFF 7 DAYS, PO
     Route: 048
     Dates: start: 20110901
  12. AMBIEN [Concomitant]
  13. FOLBIC (HEPAGRISEVIT FORTE-N TABLET) [Concomitant]
  14. MECLIZINE [Concomitant]
  15. PROVENTIL [Concomitant]
  16. PRAVACHOL [Concomitant]
  17. CALCIUM WITH VITAMIN D (CALCIUM WITH VITAMIN D) [Concomitant]
  18. EFFEXOR [Concomitant]
  19. MAG-OX )MAGNESIUM OXYDE) [Concomitant]
  20. MIRALAX [Concomitant]
  21. NEURONTIN [Concomitant]
  22. PROVIGIL [Concomitant]
  23. AXERT [Concomitant]
  24. FENTANYL [Concomitant]
  25. CEPHALEXIN [Concomitant]
  26. REQUIP [Concomitant]
  27. COMPAZINE [Concomitant]
  28. LOVENOX [Concomitant]

REACTIONS (6)
  - DRUG INTOLERANCE [None]
  - PULMONARY EMBOLISM [None]
  - DEEP VEIN THROMBOSIS [None]
  - INSOMNIA [None]
  - DYSPNOEA [None]
  - MUSCLE SPASMS [None]
